FAERS Safety Report 15363249 (Version 1)
Quarter: 2018Q3

REPORT INFORMATION
  Report Type: Spontaneous
  Country: US (occurrence: US)
  Receive Date: 20180831
  Receipt Date: 20180831
  Transmission Date: 20181010
  Serious: No
  Sender: FDA-Public Use
  Company Number: None

PATIENT
  Age: 53 Year
  Sex: Female

DRUGS (1)
  1. COLISTIMETHATE [Suspect]
     Active Substance: COLISTIMETHATE SODIUM
     Indication: CYSTIC FIBROSIS
     Route: 042
     Dates: start: 20180720

REACTIONS (3)
  - Malaise [None]
  - Therapy change [None]
  - Dizziness [None]

NARRATIVE: CASE EVENT DATE: 20180720
